FAERS Safety Report 23274220 (Version 2)
Quarter: 2024Q1

REPORT INFORMATION
  Report Type: Spontaneous
  Country: US (occurrence: US)
  Receive Date: 20231208
  Receipt Date: 20240106
  Transmission Date: 20240410
  Serious: Yes (Hospitalization)
  Sender: FDA-Public Use
  Company Number: US-AUROBINDO-AUR-APL-2023-076122

PATIENT
  Age: 57 Year
  Sex: Male
  Weight: 115 kg

DRUGS (1)
  1. VANCOMYCIN [Suspect]
     Active Substance: VANCOMYCIN
     Indication: Staphylococcal bacteraemia
     Dosage: 3 GRAM (26 MG/KG) AND (O AUC/MIC DOSING AT 1.5G (13 MG/KG) EVERY 12 HOURS) WITH A GOAL AUC OF 400 TO
     Route: 065

REACTIONS (1)
  - Drug ineffective [Unknown]
